FAERS Safety Report 7340802-5 (Version None)
Quarter: 2011Q1

REPORT INFORMATION
  Report Type: 
  Country: None (occurrence: None)
  Receive Date: 20110301
  Receipt Date: 20110217
  Transmission Date: 20110831
  Serious: Yes (Other)
  Sender: FDA-Public Use
  Company Number: 2011MA000171

PATIENT
  Sex: Male

DRUGS (43)
  1. VALIUM [Concomitant]
  2. CLARINEX [Concomitant]
  3. MAXAIR [Concomitant]
  4. HYDROCODONE BITARTRATE [Concomitant]
  5. LOVASTATIN [Concomitant]
  6. CRESTOR [Concomitant]
  7. LOTENSIN [Concomitant]
  8. NITOBID [Concomitant]
  9. PHENERGAN [Concomitant]
  10. COREG [Concomitant]
  11. XOPENEX [Concomitant]
  12. LIPITOR [Concomitant]
  13. INSULIN [Concomitant]
  14. AMLODIPINE [Concomitant]
  15. BENAZEPRIL [Concomitant]
  16. FUROSEMIDE [Concomitant]
  17. ERYTHROMYCIN [Concomitant]
  18. MS CONTIN [Concomitant]
  19. PROMETHAZINE [Concomitant]
  20. DEPAKOTE [Concomitant]
  21. PANLOR-DC [Concomitant]
  22. PROZAC [Concomitant]
  23. ADVAIR DISKUS 100/50 [Concomitant]
  24. METOCLOPRAMIDE [Suspect]
     Indication: GASTROOESOPHAGEAL REFLUX DISEASE
     Dosage: PO
     Route: 048
     Dates: start: 19990501, end: 20091101
  25. METOCLOPRAMIDE [Suspect]
     Indication: IMPAIRED GASTRIC EMPTYING
     Dosage: PO
     Route: 048
     Dates: start: 19990501, end: 20091101
  26. NEXIUM [Concomitant]
  27. KLONOPIN [Concomitant]
  28. ASPIRIN PLUS C [Concomitant]
  29. DIAZEPAM [Concomitant]
  30. ZOLPIDEM [Concomitant]
  31. PLAVIX [Concomitant]
  32. ALBUTEROL [Concomitant]
  33. CIPROFLOXACIN [Concomitant]
  34. ELAVIL [Concomitant]
  35. AZMACORT [Concomitant]
  36. LORCET-HD [Concomitant]
  37. NEXIUM [Concomitant]
  38. FLOMAX [Concomitant]
  39. OMEPRAZOLE [Concomitant]
  40. TRAZODONE [Concomitant]
  41. VESICARE [Concomitant]
  42. GABAPENTIN [Concomitant]
  43. BENADRYL [Concomitant]

REACTIONS (13)
  - TRISMUS [None]
  - MEMORY IMPAIRMENT [None]
  - PAIN [None]
  - ECONOMIC PROBLEM [None]
  - DYSKINESIA [None]
  - EXCESSIVE EYE BLINKING [None]
  - BALANCE DISORDER [None]
  - TARDIVE DYSKINESIA [None]
  - EXTRAPYRAMIDAL DISORDER [None]
  - GRIMACING [None]
  - EMOTIONAL DISORDER [None]
  - COORDINATION ABNORMAL [None]
  - ANXIETY [None]
